FAERS Safety Report 5225864-3 (Version None)
Quarter: 2007Q1

REPORT INFORMATION
  Report Type: 
  Country: None (occurrence: None)
  Receive Date: 20070130
  Receipt Date: 20070130
  Transmission Date: 20070707
  Serious: No
  Sender: FDA-Public Use
  Company Number: None

PATIENT
  Age: 80 Year
  Sex: Female
  Weight: 63.5036 kg

DRUGS (2)
  1. AMPICILLIN AND SULBACTAM [Suspect]
     Indication: CELLULITIS
     Dosage: 3GM EVERY 6 HOURS I.V.
     Route: 042
     Dates: start: 20070111
  2. AMPICILLIN AND SULBACTAM [Suspect]
     Indication: CELLULITIS
     Dosage: 3GM EVERY 6 HOURS I.V.
     Route: 042
     Dates: start: 20070112

REACTIONS (1)
  - INFUSION RELATED REACTION [None]
